FAERS Safety Report 5386061-4 (Version None)
Quarter: 2007Q3

REPORT INFORMATION
  Report Type: 
  Country: None (occurrence: None)
  Receive Date: 20070710
  Receipt Date: 20070703
  Transmission Date: 20080115
  Serious: Yes (Death)
  Sender: FDA-Public Use
  Company Number: 20073913

PATIENT
  Sex: Female

DRUGS (5)
  1. LIORESAL [Suspect]
     Indication: MUSCLE SPASTICITY
     Dosage: 510 MCG, DAILY, INTRATHECAL
     Route: 037
  2. HYDROMORPHONE HCL [Concomitant]
  3. TETRACAINE POLYGYL STERILE OPHTHALMIC SOLUTION [Concomitant]
  4. CLONIDINE [Concomitant]
  5. KETAMINE HCL [Concomitant]

REACTIONS (1)
  - DEATH [None]
